FAERS Safety Report 5412353-6 (Version None)
Quarter: 2007Q3

REPORT INFORMATION
  Report Type: 
  Country: None (occurrence: None)
  Receive Date: 20070809
  Receipt Date: 20070730
  Transmission Date: 20080115
  Serious: Yes (Hospitalization)
  Sender: FDA-Public Use
  Company Number: 236325K07USA

PATIENT
  Age: 33 Year
  Sex: Female

DRUGS (5)
  1. REBIF [Suspect]
     Indication: MULTIPLE SCLEROSIS
     Dosage: 44 MCG, 3 IN 1 WEEKS, SUBCUTANEOUS; 22 MCG, 3  IN  1  WEEKS, SUBCUTANEOUS
     Route: 058
     Dates: start: 20070408, end: 20070101
  2. REBIF [Suspect]
     Indication: MULTIPLE SCLEROSIS
     Dosage: 44 MCG, 3 IN 1 WEEKS, SUBCUTANEOUS; 22 MCG, 3  IN  1  WEEKS, SUBCUTANEOUS
     Route: 058
     Dates: start: 20070101
  3. SOLU-MEDROL [Concomitant]
  4. PREDNISONE TAB [Concomitant]
  5. IBUPROFEN [Concomitant]

REACTIONS (4)
  - FATIGUE [None]
  - HYPOTHYROIDISM [None]
  - PROCEDURAL PAIN [None]
  - THYROID CANCER [None]
